FAERS Safety Report 25334744 (Version 4)
Quarter: 2025Q3

REPORT INFORMATION
  Report Type: Spontaneous
  Country: ZA (occurrence: ZA)
  Receive Date: 20250520
  Receipt Date: 20250825
  Transmission Date: 20251021
  Serious: Yes (Death, Other)
  Sender: CSL BEHRING
  Company Number: ZA-ROCHE-10000284376

PATIENT
  Sex: Male

DRUGS (1)
  1. MIRCERA [Suspect]
     Active Substance: METHOXY POLYETHYLENE GLYCOL-EPOETIN BETA
     Indication: Product used for unknown indication
     Route: 065

REACTIONS (25)
  - Death [Fatal]
  - Haemoglobin increased [Unknown]
  - Chronic kidney disease [Unknown]
  - Blood sodium decreased [Unknown]
  - Blood potassium increased [Unknown]
  - Blood bicarbonate decreased [Unknown]
  - Blood urea increased [Unknown]
  - Blood creatinine increased [Unknown]
  - Blood calcium decreased [Unknown]
  - Blood phosphorus increased [Unknown]
  - High density lipoprotein decreased [Unknown]
  - Total cholesterol/HDL ratio decreased [Unknown]
  - Alanine aminotransferase decreased [Unknown]
  - Blood glucose increased [Unknown]
  - Glycosylated haemoglobin increased [Unknown]
  - Blood iron decreased [Unknown]
  - Transferrin saturation decreased [Unknown]
  - Blood parathyroid hormone increased [Unknown]
  - Haemoglobin decreased [Unknown]
  - Mean cell haemoglobin decreased [Unknown]
  - Mean cell haemoglobin concentration decreased [Unknown]
  - Red cell distribution width increased [Unknown]
  - Reticulocyte count decreased [Unknown]
  - Eosinophil count increased [Unknown]
  - Immature granulocyte count increased [Unknown]
